FAERS Safety Report 17999207 (Version 1)
Quarter: 2020Q3

REPORT INFORMATION
  Report Type: Spontaneous
  Country: US (occurrence: US)
  Receive Date: 20200708
  Receipt Date: 20200708
  Transmission Date: 20201103
  Serious: Yes (Other)
  Sender: FDA-Public Use
  Company Number: None

PATIENT
  Age: 50 Year
  Sex: Male
  Weight: 74.25 kg

DRUGS (9)
  1. BRAFTOVI [Suspect]
     Active Substance: ENCORAFENIB
     Indication: RECTAL CANCER
     Route: 048
     Dates: start: 20200221
  2. OXYCODONE [Concomitant]
     Active Substance: OXYCODONE
  3. TRAMADOL. [Concomitant]
     Active Substance: TRAMADOL
  4. ONDANSETRON [Concomitant]
     Active Substance: ONDANSETRON
  5. ACETAMINOPHEN. [Concomitant]
     Active Substance: ACETAMINOPHEN
  6. LOVENOX [Concomitant]
     Active Substance: ENOXAPARIN SODIUM
  7. IBUPROFEN. [Concomitant]
     Active Substance: IBUPROFEN
  8. ATIVAN [Concomitant]
     Active Substance: LORAZEPAM
  9. PROCHLORPERAZINE. [Concomitant]
     Active Substance: PROCHLORPERAZINE

REACTIONS (1)
  - Disease progression [None]
